FAERS Safety Report 6808912-6 (Version None)
Quarter: 2010Q2

REPORT INFORMATION
  Report Type: 
  Country: None (occurrence: None)
  Receive Date: 20100630
  Receipt Date: 20090929
  Transmission Date: 20101027
  Serious: No
  Sender: FDA-Public Use
  Company Number: US-PFIZER INC-2009276880

PATIENT
  Sex: Male

DRUGS (1)
  1. XANAX [Suspect]
     Dosage: FREQUENCY: 3X/DAY,

REACTIONS (2)
  - EYE DISORDER [None]
  - TREMOR [None]
